FAERS Safety Report 24380215 (Version 1)
Quarter: 2024Q3

REPORT INFORMATION
  Report Type: Spontaneous
  Country: US (occurrence: US)
  Receive Date: 20240930
  Receipt Date: 20240930
  Transmission Date: 20241017
  Serious: Yes (Death, Hospitalization, Other)
  Sender: GILEAD
  Company Number: US-GILEAD-2024-0689264

PATIENT
  Sex: Male

DRUGS (1)
  1. YESCARTA [Suspect]
     Active Substance: AXICABTAGENE CILOLEUCEL
     Indication: Product used for unknown indication
     Dosage: UNK
     Route: 042
     Dates: start: 20240904, end: 20240904

REACTIONS (1)
  - Death [Fatal]

NARRATIVE: CASE EVENT DATE: 20240925
